FAERS Safety Report 9952601 (Version 2)
Quarter: 2014Q1

REPORT INFORMATION
  Report Type: Spontaneous
  Country: ZA (occurrence: ZA)
  Receive Date: 20140304
  Receipt Date: 20140304
  Transmission Date: 20141002
  Serious: Yes (Other)
  Sender: FDA-Public Use
  Company Number: ZA-HORIZON-VIM-0017-2014

PATIENT
  Sex: Female

DRUGS (5)
  1. VIMOVO [Suspect]
     Dosage: 500/20 MG, 1 DF TWO TIMES A DAY
     Route: 048
     Dates: end: 20140128
  2. XARELTO [Concomitant]
     Route: 048
     Dates: start: 20140122, end: 20140123
  3. XARELTO [Concomitant]
     Route: 048
     Dates: start: 20140124, end: 20140202
  4. CAYENNE PEPPER [Concomitant]
  5. MYPAID [Concomitant]
     Dosage: 2 DF ONCE A DAY WHEN NEEDED

REACTIONS (3)
  - Haemarthrosis [Recovered/Resolved]
  - Contusion [Recovering/Resolving]
  - Muscle swelling [Recovered/Resolved]
